FAERS Safety Report 4746400-1 (Version None)
Quarter: 2005Q3

REPORT INFORMATION
  Report Type: 
  Country: None (occurrence: None)
  Receive Date: 20050815
  Receipt Date: 20050802
  Transmission Date: 20060218
  Serious: Yes (Other)
  Sender: FDA-Public Use
  Company Number: 2005058049

PATIENT
  Age: 64 Year
  Sex: Male
  Weight: 80.2867 kg

DRUGS (4)
  1. BEXTRA [Suspect]
     Indication: SHOULDER OPERATION
     Dosage: 20 MG (20 MG, 1 IN 1 DAY), ORAL
     Route: 048
     Dates: start: 20041126, end: 20041214
  2. MULTIVITAMIN [Concomitant]
  3. ACETAMINOPHEN W/ CODEINE [Concomitant]
  4. HYDROMORPHONE HYDROCHLORIDE (HYDROMORPHONE HYDROCHLORIDE) [Concomitant]

REACTIONS (4)
  - HERPES ZOSTER [None]
  - OEDEMA PERIPHERAL [None]
  - PALPITATIONS [None]
  - RASH [None]
